FAERS Safety Report 4711887-7 (Version None)
Quarter: 2005Q3

REPORT INFORMATION
  Report Type: 
  Country: None (occurrence: None)
  Receive Date: 20050712
  Receipt Date: 20050525
  Transmission Date: 20060218
  Serious: Yes (Other)
  Sender: FDA-Public Use
  Company Number: FR-BRISTOL-MYERS SQUIBB COMPANY-12982773

PATIENT
  Age: 32 Year
  Sex: Female
  Weight: 55 kg

DRUGS (3)
  1. REYATAZ [Suspect]
     Indication: HIV INFECTION
     Route: 048
     Dates: start: 20050429, end: 20050508
  2. SAQUINAVIR [Concomitant]
  3. RITONAVIR [Concomitant]
     Dates: start: 20040719

REACTIONS (1)
  - TOXIC SKIN ERUPTION [None]
